FAERS Safety Report 22020528 (Version 3)
Quarter: 2023Q1

REPORT INFORMATION
  Report Type: Spontaneous
  Country: TR (occurrence: TR)
  Receive Date: 20230222
  Receipt Date: 20230328
  Transmission Date: 20230418
  Serious: Yes (Other)
  Sender: FDA-Public Use
  Company Number: TR-002147023-NVSC2023TR039511

PATIENT
  Age: 45 Year
  Sex: Female

DRUGS (2)
  1. ALPELISIB [Suspect]
     Active Substance: ALPELISIB
     Indication: Metastases to lung
     Dosage: 300 MG, BID (STARTED 1 MONTH AGO)
     Route: 065
  2. ALPELISIB [Suspect]
     Active Substance: ALPELISIB
     Indication: Endometrial cancer
     Dosage: 300 MG, BID
     Route: 065

REACTIONS (7)
  - Dyspnoea [Unknown]
  - Nausea [Unknown]
  - Urticaria [Recovered/Resolved]
  - Erythema [Recovered/Resolved]
  - Blood glucose abnormal [Unknown]
  - Fatigue [Unknown]
  - Product use in unapproved indication [Unknown]
